FAERS Safety Report 5425886-3 (Version None)
Quarter: 2007Q3

REPORT INFORMATION
  Report Type: 
  Country: None (occurrence: None)
  Receive Date: 20070827
  Receipt Date: 20070814
  Transmission Date: 20080115
  Serious: Yes (Other)
  Sender: FDA-Public Use
  Company Number: US-JNJFOC-20070405957

PATIENT
  Sex: Male
  Weight: 78.93 kg

DRUGS (11)
  1. ETRAVIRINE [Suspect]
     Route: 048
  2. ETRAVIRINE [Suspect]
     Indication: HIV INFECTION
     Dosage: TEMPORARILY STOPPED
     Route: 048
  3. PREZISTA [Suspect]
     Route: 048
  4. PREZISTA [Suspect]
     Indication: HIV INFECTION
     Route: 048
  5. BICILLIN [Suspect]
     Indication: SYPHILIS
     Route: 065
  6. MK-0518 [Suspect]
     Route: 048
  7. MK-0518 [Suspect]
     Indication: HIV INFECTION
     Route: 048
  8. TRUVADA [Concomitant]
     Route: 048
  9. TRUVADA [Concomitant]
     Indication: HIV INFECTION
     Route: 048
  10. NORVIR [Concomitant]
     Route: 048
  11. NORVIR [Concomitant]
     Indication: HIV INFECTION
     Route: 048

REACTIONS (6)
  - ALANINE AMINOTRANSFERASE INCREASED [None]
  - ASPARTATE AMINOTRANSFERASE INCREASED [None]
  - BLOOD ALKALINE PHOSPHATASE INCREASED [None]
  - BLOOD BILIRUBIN INCREASED [None]
  - HEPATIC STEATOSIS [None]
  - HEPATITIS [None]
